FAERS Safety Report 8563474 (Version 3)
Quarter: 2013Q1

REPORT INFORMATION
  Report Type: Spontaneous
  Country: US (occurrence: None)
  Receive Date: 20120509
  Receipt Date: 20130305
  Transmission Date: 20140127
  Serious: Yes (Life-Threatening, Hospitalization, Other)
  Sender: FDA-Public Use
  Company Number: ADR-2012-00834

PATIENT
  Sex: Female

DRUGS (2)
  1. BACLOFEN [Suspect]
  2. BACLOFEN [Suspect]

REACTIONS (4)
  - CARDIAC ARREST [None]
  - CONSTIPATION [None]
  - BRADYPHRENIA [None]
  - MEDICAL DEVICE COMPLICATION [None]
